FAERS Safety Report 6703435-7 (Version None)
Quarter: 2010Q2

REPORT INFORMATION
  Report Type: 
  Country: None (occurrence: None)
  Receive Date: 20100430
  Receipt Date: 20100415
  Transmission Date: 20101027
  Serious: Yes (Hospitalization)
  Sender: FDA-Public Use
  Company Number: FR-MYLANLABS-2010S1006808

PATIENT
  Age: 62 Year
  Sex: Female

DRUGS (6)
  1. METFORMIN HCL [Suspect]
     Indication: DIABETES MELLITUS
     Route: 048
     Dates: end: 20090331
  2. AOTAL [Suspect]
     Indication: ALCOHOLISM
     Route: 048
     Dates: end: 20090401
  3. DIAMICRON [Suspect]
     Indication: DIABETES MELLITUS
     Route: 048
     Dates: end: 20090331
  4. CORENITEC [Suspect]
     Indication: HYPERTENSION
     Route: 048
     Dates: end: 20090331
  5. NEBILOX [Suspect]
     Indication: HYPERTENSION
     Route: 048
  6. SERESTA [Suspect]
     Indication: DRUG USE FOR UNKNOWN INDICATION
     Route: 048
     Dates: end: 20090401

REACTIONS (4)
  - HYPERKALAEMIA [None]
  - HYPOGLYCAEMIA [None]
  - LACTIC ACIDOSIS [None]
  - RENAL FAILURE ACUTE [None]
